FAERS Safety Report 24070196 (Version 2)
Quarter: 2024Q3

REPORT INFORMATION
  Report Type: Report from Study
  Country: IN (occurrence: IN)
  Receive Date: 20240710
  Receipt Date: 20240710
  Transmission Date: 20241017
  Serious: No
  Sender: ROCHE
  Company Number: IN-ROCHE-3429738

PATIENT
  Age: 50 Year
  Sex: Female

DRUGS (1)
  1. PHESGO [Suspect]
     Active Substance: HYALURONIDASE-ZZXF\PERTUZUMAB\TRASTUZUMAB
     Indication: Breast cancer
     Dosage: 43RD, 44TH CYCLE SCHEDULED ON 23RD DAY (15/SEP/2023) AND 22ND DAY (07/OCT/2023), 52ND CYCLE OF ON 19
     Route: 058
     Dates: start: 20221102

REACTIONS (2)
  - Off label use [Unknown]
  - No adverse event [Unknown]
